FAERS Safety Report 5269153-X (Version None)
Quarter: 2007Q1

REPORT INFORMATION
  Report Type: 
  Country: None (occurrence: None)
  Receive Date: 20070319
  Receipt Date: 20070312
  Transmission Date: 20070707
  Serious: Yes (Hospitalization)
  Sender: FDA-Public Use
  Company Number: GB-ROXANE LABORATORIES, INC-2007-BP-03366RO

PATIENT
  Age: 62 Year
  Sex: Female

DRUGS (2)
  1. LACTULOSE [Suspect]
     Indication: LAXATIVE ABUSE
     Route: 048
  2. SENNA [Suspect]
     Indication: LAXATIVE ABUSE
     Route: 048

REACTIONS (4)
  - ANAEMIA [None]
  - CLUBBING [None]
  - COUGH [None]
  - WEIGHT DECREASED [None]
